FAERS Safety Report 5225094-5 (Version None)
Quarter: 2007Q1

REPORT INFORMATION
  Report Type: 
  Country: None (occurrence: None)
  Receive Date: 20070126
  Receipt Date: 20070117
  Transmission Date: 20070707
  Serious: Yes (Hospitalization)
  Sender: FDA-Public Use
  Company Number: 2006BI015887

PATIENT
  Age: 42 Year
  Sex: Female

DRUGS (10)
  1. NATALIZUMAB [Suspect]
     Indication: MULTIPLE SCLEROSIS
     Dosage: 300 MG; QM; IV
     Route: 042
     Dates: start: 20061029
  2. AVONEX [Concomitant]
  3. SYNTHROID [Concomitant]
  4. ACIPHEX [Concomitant]
  5. RITALIN [Concomitant]
  6. HYDROCODONE [Concomitant]
  7. NEURONTIN [Concomitant]
  8. MIRALAX [Concomitant]
  9. DURAGESIC [Concomitant]
  10. LEXAPRO [Concomitant]

REACTIONS (6)
  - ABDOMINAL DISCOMFORT [None]
  - ABDOMINAL PAIN UPPER [None]
  - GAIT DISTURBANCE [None]
  - GASTROINTESTINAL OEDEMA [None]
  - NAUSEA [None]
  - VERTIGO [None]
